FAERS Safety Report 8152031-6 (Version None)
Quarter: 2012Q1

REPORT INFORMATION
  Report Type: 
  Country: None (occurrence: None)
  Receive Date: 20120214
  Receipt Date: 20120202
  Transmission Date: 20120608
  Serious: Yes (Hospitalization)
  Sender: FDA-Public Use
  Company Number: DSJ-2012-02044

PATIENT
  Sex: Female

DRUGS (3)
  1. PANTOPRAZOLE (PANTOPRAZOLE) (PANTOPRAZOLE) [Concomitant]
  2. BENICAR [Suspect]
     Indication: HYPERTENSION
     Dosage: 20 MG (20 MG, 1 IN 1 D), PER ORAL, 40 MG (20 MG, 2 IN 1 D), PER ORAL
     Route: 048
     Dates: start: 20120113
  3. BENICAR [Suspect]
     Indication: HYPERTENSION
     Dosage: 20 MG (20 MG, 1 IN 1 D), PER ORAL, 40 MG (20 MG, 2 IN 1 D), PER ORAL
     Route: 048
     Dates: start: 20050101, end: 20120112

REACTIONS (9)
  - RENAL CANCER [None]
  - POLYURIA [None]
  - RED BLOOD CELL SEDIMENTATION RATE ABNORMAL [None]
  - HEADACHE [None]
  - DRUG INEFFECTIVE [None]
  - WEIGHT DECREASED [None]
  - PAIN [None]
  - HYPOKINESIA [None]
  - LIPOMA [None]
